FAERS Safety Report 13765170 (Version 1)
Quarter: 2017Q3

REPORT INFORMATION
  Report Type: Spontaneous
  Country: GB (occurrence: GB)
  Receive Date: 20170718
  Receipt Date: 20170718
  Transmission Date: 20171127
  Serious: Yes (Other)
  Sender: FDA-Public Use
  Company Number: GB-PFIZER INC-2471200

PATIENT
  Age: 61 Year
  Sex: Female
  Weight: 80 kg

DRUGS (3)
  1. ROACTEMRA [Suspect]
     Active Substance: TOCILIZUMAB
     Indication: RHEUMATOID ARTHRITIS
     Dosage: 32 MG, FREQ: 1 MONTH; INTERVAL: 1
     Route: 042
     Dates: start: 20140117
  2. HYDROXYCHLOROQUINE [Concomitant]
     Active Substance: HYDROXYCHLOROQUINE
     Indication: PRODUCT USED FOR UNKNOWN INDICATION
     Dosage: 200 MG, FREQ: 2 DAY; INTERVAL: 1
     Route: 065
     Dates: start: 20110801
  3. METHOTREXATE SODIUM. [Suspect]
     Active Substance: METHOTREXATE SODIUM
     Indication: RHEUMATOID ARTHRITIS
     Dosage: 15 MG, FREQ: 1 WEEK; INTERVAL: 1
     Route: 048
     Dates: start: 20100930

REACTIONS (1)
  - Rheumatoid nodule [Not Recovered/Not Resolved]

NARRATIVE: CASE EVENT DATE: 20140625
